FAERS Safety Report 19086902 (Version 1)
Quarter: 2021Q2

REPORT INFORMATION
  Report Type: Spontaneous
  Country: GB (occurrence: GB)
  Receive Date: 20210402
  Receipt Date: 20210402
  Transmission Date: 20210717
  Serious: Yes (Other)
  Sender: FDA-Public Use
  Company Number: GB-009507513-2104GBR000187

PATIENT
  Age: 61 Year
  Sex: Female

DRUGS (6)
  1. CEFTRIAXONE. [Concomitant]
     Active Substance: CEFTRIAXONE
     Indication: SINUSITIS
     Dosage: 2 GRAM, BID
     Route: 042
  2. AMPHOTERICIN B. [Concomitant]
     Active Substance: AMPHOTERICIN B
     Indication: OSTEOMYELITIS FUNGAL
     Dosage: INTO THE MAXILLARY SINUS PERIOPERATIVELY
  3. METRONIDAZOLE. [Concomitant]
     Active Substance: METRONIDAZOLE
     Indication: SINUSITIS
     Dosage: 500 MILLIGRAM, TID
     Route: 042
  4. POSACONAZOLE [Suspect]
     Active Substance: POSACONAZOLE
     Indication: RHINOCEREBRAL MUCORMYCOSIS
     Dosage: 300 MILLIGRAM, QD
     Route: 042
  5. CHLORAMPHENICOL [Concomitant]
     Active Substance: CHLORAMPHENICOL
     Indication: SINUSITIS
     Dosage: UNK, BID
     Route: 061
  6. AMPHOTERICIN B. [Concomitant]
     Active Substance: AMPHOTERICIN B
     Dosage: 5 MILLIGRAM/KILOGRAM, QD
     Route: 042

REACTIONS (2)
  - Drug-induced liver injury [Unknown]
  - Off label use [Unknown]
